FAERS Safety Report 9015953 (Version 1)
Quarter: 2013Q1

REPORT INFORMATION
  Report Type: Spontaneous
  Country: FR (occurrence: FR)
  Receive Date: 20130116
  Receipt Date: 20130116
  Transmission Date: 20140127
  Serious: Yes (Death, Hospitalization, Other)
  Sender: FDA-Public Use
  Company Number: FR-ELI_LILLY_AND_COMPANY-FR201301003725

PATIENT
  Sex: Male
  Weight: 84 kg

DRUGS (4)
  1. ALIMTA [Suspect]
     Indication: LUNG ADENOCARCINOMA
     Dosage: 975 MG, UNK
     Route: 042
     Dates: start: 20120802
  2. ALIMTA [Suspect]
     Dosage: 975 MG, UNK
     Dates: start: 20120904, end: 20120904
  3. VITAMIN B12 [Concomitant]
     Dosage: 633 UNK, UNK
  4. SPECIAFOLDINE [Concomitant]

REACTIONS (10)
  - Death [Fatal]
  - Respiratory failure [Not Recovered/Not Resolved]
  - Anaemia [Unknown]
  - Thrombocytopenia [Unknown]
  - Malignant neoplasm progression [Not Recovered/Not Resolved]
  - Pneumonia bacterial [Not Recovered/Not Resolved]
  - Arrhythmia [Not Recovered/Not Resolved]
  - General physical health deterioration [Not Recovered/Not Resolved]
  - Device related infection [Not Recovered/Not Resolved]
  - Bone marrow toxicity [Unknown]
